FAERS Safety Report 4611497-6 (Version None)
Quarter: 2005Q2

REPORT INFORMATION
  Report Type: 
  Country: None (occurrence: None)
  Receive Date: 20050311
  Receipt Date: 20041116
  Transmission Date: 20051028
  Serious: No
  Sender: FDA-Public Use
  Company Number: 2004-BP-09854BP

PATIENT
  Age: 67 Year
  Sex: Male

DRUGS (34)
  1. SPIRIVA [Suspect]
     Indication: CHRONIC OBSTRUCTIVE PULMONARY DISEASE
     Dosage: 18 MCG (18 MCG), IH
     Route: 055
     Dates: start: 20040901
  2. SPIRIVA [Suspect]
     Indication: EMPHYSEMA
     Dosage: 18 MCG (18 MCG), IH
     Route: 055
     Dates: start: 20040901
  3. SPIRIVA [Suspect]
     Indication: CHRONIC OBSTRUCTIVE PULMONARY DISEASE
     Dosage: 18 MCG (18 MCG), IH
     Route: 055
     Dates: start: 20040901
  4. SPIRIVA [Suspect]
     Indication: EMPHYSEMA
     Dosage: 18 MCG (18 MCG), IH
     Route: 055
     Dates: start: 20040901
  5. BEXTRA [Concomitant]
  6. COLCHICINE (COLCHICINE) [Concomitant]
  7. ALLOPURINOL [Concomitant]
  8. FOSAMAX [Concomitant]
  9. NITROGLYCERIN [Concomitant]
  10. ALBUTEROL/IPRATROPIUM [Concomitant]
  11. FLONASE [Concomitant]
  12. FLOVENT [Concomitant]
  13. SEREVENT [Concomitant]
  14. ASTELIN [Concomitant]
  15. THEO-24 (THEOPHYLLINE) [Concomitant]
  16. VERAPAMIL [Concomitant]
  17. SINGULAIR (MONTELUKAST) [Concomitant]
  18. ASPIRIN [Concomitant]
  19. HYZAAR [Concomitant]
  20. ZOCOR [Concomitant]
  21. ISOSORBIDE (ISOSORBIDE) [Concomitant]
  22. XOPENEX [Concomitant]
  23. CITRACEL [Concomitant]
  24. FUROSEMIDE [Concomitant]
  25. KLOR-CON [Concomitant]
  26. XENICAL [Concomitant]
  27. HYDROCORTISONE CREAM 0.1% [Concomitant]
  28. HYDROCORTISONE 0.2% [Concomitant]
  29. QUININE SULFATE [Concomitant]
  30. CEFUROXIME [Concomitant]
  31. ULTRACET (ULTRACET) [Concomitant]
  32. LEVAQUIN [Concomitant]
  33. SSKI (POTASSIUM IODIDE) [Concomitant]
  34. CLINDAMYCIN HCL [Concomitant]

REACTIONS (1)
  - DRY MOUTH [None]
